FAERS Safety Report 17878335 (Version 1)
Quarter: 2020Q2

REPORT INFORMATION
  Report Type: Spontaneous
  Country: NL (occurrence: NL)
  Receive Date: 20200610
  Receipt Date: 20200610
  Transmission Date: 20200714
  Serious: Yes (Other)
  Sender: FDA-Public Use
  Company Number: NL-AUROBINDO-AUR-APL-2020-027611

PATIENT
  Sex: Female
  Weight: 75 kg

DRUGS (1)
  1. ZOLPIDEM [Suspect]
     Active Substance: ZOLPIDEM TARTRATE
     Indication: SLEEP DISORDER
     Dosage: 10 MILLIGRAM, ONCE A DAY (IF NECESSARY 1X DAILY)
     Route: 065
     Dates: start: 202003

REACTIONS (1)
  - Hallucination [Recovered/Resolved]
